FAERS Safety Report 8468205-0 (Version None)
Quarter: 2012Q2

REPORT INFORMATION
  Report Type: 
  Country: None (occurrence: None)
  Receive Date: 20120626
  Receipt Date: 20120618
  Transmission Date: 20120825
  Serious: Yes (Hospitalization)
  Sender: FDA-Public Use
  Company Number: IN-PFIZER INC-2012147380

PATIENT
  Age: 32 Year
  Sex: Female

DRUGS (4)
  1. ETHAMBUTOL [Concomitant]
     Indication: PLEURAL EFFUSION
     Dosage: UNK
  2. PYRAZINAMIDE [Concomitant]
     Indication: PLEURAL EFFUSION
     Dosage: UNK
  3. RIFAMPICIN [Suspect]
     Indication: PLEURAL EFFUSION
     Dosage: UNK
  4. ISONIAZID [Concomitant]
     Indication: PLEURAL EFFUSION
     Dosage: UNK

REACTIONS (2)
  - ANAEMIA [None]
  - THROMBOCYTOPENIC PURPURA [None]
